FAERS Safety Report 7330404-9 (Version None)
Quarter: 2011Q1

REPORT INFORMATION
  Report Type: 
  Country: None (occurrence: None)
  Receive Date: 20110304
  Receipt Date: 20110223
  Transmission Date: 20110831
  Serious: No
  Sender: FDA-Public Use
  Company Number: US-BIOGENIDEC-2010BI040374

PATIENT
  Sex: Male

DRUGS (2)
  1. RITALIN [Concomitant]
     Indication: FATIGUE
  2. TYSABRI [Suspect]
     Indication: MULTIPLE SCLEROSIS
     Route: 042
     Dates: start: 20080226, end: 20100414

REACTIONS (10)
  - FATIGUE [None]
  - INSOMNIA [None]
  - MOBILITY DECREASED [None]
  - ANXIETY [None]
  - STRESS [None]
  - PAIN IN EXTREMITY [None]
  - COGNITIVE DISORDER [None]
  - MUSCLE SPASTICITY [None]
  - MUSCLE SPASMS [None]
  - MULTIPLE SCLEROSIS [None]
